FAERS Safety Report 4291689-9 (Version None)
Quarter: 2004Q1

REPORT INFORMATION
  Report Type: 
  Country: None (occurrence: None)
  Receive Date: 20040211
  Receipt Date: 20020717
  Transmission Date: 20041129
  Serious: No
  Sender: FDA-Public Use
  Company Number: US-GLAXOSMITHKLINE-A0375627A

PATIENT
  Age: 43 Year
  Sex: Female
  Weight: 90.9 kg

DRUGS (4)
  1. IMITREX [Suspect]
     Indication: MIGRAINE
     Route: 058
  2. LICO3 [Concomitant]
     Dosage: 900U PER DAY
     Route: 048
     Dates: start: 19960101
  3. LAMICTAL [Concomitant]
     Dosage: 400MG PER DAY
     Route: 048
     Dates: start: 19970101
  4. ZOLOFT [Concomitant]
     Indication: MIGRAINE
     Route: 048
     Dates: start: 19920101

REACTIONS (2)
  - HEART RATE DECREASED [None]
  - PULSE PRESSURE DECREASED [None]
